FAERS Safety Report 17296617 (Version 1)
Quarter: 2020Q1

REPORT INFORMATION
  Report Type: Spontaneous
  Country: CA (occurrence: CA)
  Receive Date: 20200121
  Receipt Date: 20200121
  Transmission Date: 20200409
  Serious: Yes (Disabling)
  Sender: FDA-Public Use
  Company Number: CA-ALLERGAN-2002219US

PATIENT
  Sex: Male
  Weight: 89 kg

DRUGS (1)
  1. ESCITALOPRAM OXALATE - BP [Suspect]
     Active Substance: ESCITALOPRAM OXALATE
     Indication: DEPRESSION
     Dosage: 10 MG, QD
     Route: 048

REACTIONS (6)
  - Skin abrasion [Unknown]
  - Pruritus [Unknown]
  - Sleep disorder [Unknown]
  - Decreased activity [Unknown]
  - Feeding disorder [Unknown]
  - Rash [Unknown]
